FAERS Safety Report 10187858 (Version 1)
Quarter: 2014Q2

REPORT INFORMATION
  Report Type: Spontaneous
  Country: US (occurrence: US)
  Receive Date: 20140522
  Receipt Date: 20140522
  Transmission Date: 20141212
  Serious: No
  Sender: FDA-Public Use
  Company Number: US-SANOFI-AVENTIS-2013SA092112

PATIENT
  Sex: Female

DRUGS (4)
  1. LANTUS SOLOSTAR [Suspect]
     Route: 051
  2. SOLOSTAR [Concomitant]
  3. GLIPIZIDE [Suspect]
     Route: 065
  4. METFORMIN [Suspect]
     Route: 065

REACTIONS (5)
  - Injection site swelling [Unknown]
  - Syncope [Unknown]
  - Blood glucose increased [Unknown]
  - Blood glucose decreased [Unknown]
  - Wrong technique in drug usage process [Unknown]
